FAERS Safety Report 6420435-5 (Version None)
Quarter: 2009Q4

REPORT INFORMATION
  Report Type: 
  Country: None (occurrence: None)
  Receive Date: 20091021
  Receipt Date: 20090811
  Transmission Date: 20100525
  Serious: No
  Sender: FDA-Public Use
  Company Number: ALL1-2009-02273

PATIENT
  Age: 30 Year
  Sex: Female
  Weight: 56.2 kg

DRUGS (5)
  1. VYVANSE [Suspect]
     Indication: ATTENTION DEFICIT/HYPERACTIVITY DISORDER
     Dosage: 40 MG, ORAL; 50 MG, AS REQ'D, ORAL; 60 MG, AS REQ'D, ORAL
     Route: 048
     Dates: start: 20090501, end: 20090601
  2. VYVANSE [Suspect]
     Indication: ATTENTION DEFICIT/HYPERACTIVITY DISORDER
     Dosage: 40 MG, ORAL; 50 MG, AS REQ'D, ORAL; 60 MG, AS REQ'D, ORAL
     Route: 048
     Dates: start: 20090601, end: 20090701
  3. VYVANSE [Suspect]
     Indication: ATTENTION DEFICIT/HYPERACTIVITY DISORDER
     Dosage: 40 MG, ORAL; 50 MG, AS REQ'D, ORAL; 60 MG, AS REQ'D, ORAL
     Route: 048
     Dates: start: 20090701
  4. UNSPECIFIED ^SHORT-ACTING^ MEDICATION() [Suspect]
     Indication: ATTENTION DEFICIT/HYPERACTIVITY DISORDER
     Dosage: AS REQ'D, ORAL
     Route: 048
     Dates: start: 20090701
  5. LOESTRIN FE (ETHINYLESTRADIOL, FERROUS FUMARATE, NORETHISTERONE ACETAT [Concomitant]

REACTIONS (2)
  - EYE IRRITATION [None]
  - VISION BLURRED [None]
